FAERS Safety Report 5815105-8 (Version None)
Quarter: 2008Q3

REPORT INFORMATION
  Report Type: 
  Country: None (occurrence: None)
  Receive Date: 20080718
  Receipt Date: 20080714
  Transmission Date: 20090109
  Serious: Yes (Hospitalization)
  Sender: FDA-Public Use
  Company Number: GB-MERCK-0807GBR00067

PATIENT
  Age: 50 Year
  Sex: Male

DRUGS (4)
  1. ZOCOR [Suspect]
     Route: 065
     Dates: start: 20061023, end: 20080627
  2. CETIRIZINE HYDROCHLORIDE [Concomitant]
     Route: 065
  3. ALBUTEROL [Concomitant]
     Route: 065
  4. FLUTICASONE PROPIONATE AND SALMETEROL XINAFOATE [Concomitant]
     Route: 065

REACTIONS (3)
  - CONTUSION [None]
  - RASH PRURITIC [None]
  - THROMBOCYTOPENIA [None]
